FAERS Safety Report 5223595-7 (Version None)
Quarter: 2007Q1

REPORT INFORMATION
  Report Type: 
  Country: None (occurrence: None)
  Receive Date: 20070125
  Receipt Date: 20070112
  Transmission Date: 20070707
  Serious: Yes (Hospitalization)
  Sender: FDA-Public Use
  Company Number: 200711158

PATIENT
  Age: 62 Year
  Sex: Male

DRUGS (16)
  1. REDIMUNE (IMMUNOGLOBULIN HUMAN NORMAL)  (ZLB BEHRING) [Suspect]
     Indication: IMMUNODEFICIENCY COMMON VARIABLE
     Dosage: 12 G TID IV
     Route: 042
     Dates: start: 20061211, end: 20061212
  2. PROGRAF [Concomitant]
  3. CELLCEPT [Concomitant]
  4. PREDNISONE [Concomitant]
  5. PLENDIL [Concomitant]
  6. PANTOZOL [Concomitant]
  7. TAMBOCOR [Concomitant]
  8. SINTROM [Concomitant]
  9. ZITHROMAX [Concomitant]
  10. NOPIL [Concomitant]
  11. UNIFYL [Concomitant]
  12. SERETIDE /01420901/ [Concomitant]
  13. SPIRIVA [Concomitant]
  14. IMOVANE [Concomitant]
  15. ANXIOLIT [Concomitant]
  16. NICOTINELL /01033301/ [Concomitant]

REACTIONS (6)
  - ANURIA [None]
  - HAEMODIALYSIS [None]
  - LOSS OF CONSCIOUSNESS [None]
  - MALAISE [None]
  - METABOLIC ACIDOSIS [None]
  - RENAL FAILURE ACUTE [None]
